FAERS Safety Report 16279144 (Version 1)
Quarter: 2019Q2

REPORT INFORMATION
  Report Type: Spontaneous
  Country: SE (occurrence: SE)
  Receive Date: 20190506
  Receipt Date: 20190506
  Transmission Date: 20190711
  Serious: Yes (Hospitalization)
  Sender: FDA-Public Use
  Company Number: SE-TEVA-2019-SE-1045448

PATIENT
  Sex: Male

DRUGS (1)
  1. LOPERAMIDE [Suspect]
     Active Substance: LOPERAMIDE
     Dosage: 20 PACKS, 300 TABLETS
     Dates: start: 20170727, end: 20170727

REACTIONS (5)
  - Intentional overdose [Unknown]
  - Mydriasis [Unknown]
  - Hypertension [Unknown]
  - Agitation [Unknown]
  - Drug abuse [Unknown]

NARRATIVE: CASE EVENT DATE: 20170727
